FAERS Safety Report 10633582 (Version 5)
Quarter: 2016Q2

REPORT INFORMATION
  Report Type: Spontaneous
  Country: US (occurrence: US)
  Receive Date: 20141205
  Receipt Date: 20160608
  Transmission Date: 20160815
  Serious: No
  Sender: FDA-Public Use
  Company Number: US-JNJFOC-20141116212

PATIENT
  Age: 10 Year
  Sex: Male

DRUGS (3)
  1. RISPERIDONE. [Suspect]
     Active Substance: RISPERIDONE
     Indication: PRODUCT USED FOR UNKNOWN INDICATION
     Route: 048
  2. RISPERDAL [Suspect]
     Active Substance: RISPERIDONE
     Indication: TIC
     Route: 048
  3. RISPERDAL [Suspect]
     Active Substance: RISPERIDONE
     Indication: ABNORMAL BEHAVIOUR
     Route: 048

REACTIONS (7)
  - Gynaecomastia [Unknown]
  - Abnormal weight gain [Not Recovered/Not Resolved]
  - Increased appetite [Unknown]
  - Product use issue [Unknown]
  - Hyperprolactinaemia [Unknown]
  - Galactorrhoea [Unknown]
  - Somnolence [Unknown]

NARRATIVE: CASE EVENT DATE: 20100617
